FAERS Safety Report 6243738-6 (Version None)
Quarter: 2009Q2

REPORT INFORMATION
  Report Type: 
  Country: None (occurrence: None)
  Receive Date: 20090624
  Receipt Date: 20080718
  Transmission Date: 20091009
  Serious: Yes (Other)
  Sender: FDA-Public Use
  Company Number: A0733428A

PATIENT
  Age: 22 Year
  Sex: Male
  Weight: 44.1 kg

DRUGS (13)
  1. FORTAZ [Suspect]
     Indication: PNEUMONIA
     Dosage: 1G THREE TIMES PER DAY
     Route: 042
     Dates: start: 20080610, end: 20080616
  2. TYLENOL (CAPLET) [Concomitant]
     Dosage: 650MG AS REQUIRED
     Dates: start: 20080605
  3. DUONEB [Concomitant]
     Dosage: 3ML AS REQUIRED
     Route: 055
     Dates: start: 20080605
  4. BACLOFEN [Concomitant]
     Dosage: 20MG FOUR TIMES PER DAY
     Dates: start: 20080605
  5. LOVENOX [Concomitant]
     Dosage: 30MG TWENTY FOUR TIMES PER DAY
     Route: 058
     Dates: start: 20080606
  6. FENTANYL [Concomitant]
     Dosage: 12MCG EVERY 3 DAYS
     Route: 062
     Dates: start: 20080606
  7. PREVACID [Concomitant]
     Dosage: 30MG PER DAY
     Route: 048
  8. ATIVAN [Concomitant]
     Dosage: 1MG AS REQUIRED
     Route: 048
     Dates: start: 20080605
  9. LOPRESSOR [Concomitant]
     Dosage: 25MG TWICE PER DAY
     Route: 048
     Dates: start: 20080605
  10. FLAGYL [Concomitant]
     Dosage: 250MG FOUR TIMES PER DAY
     Route: 048
     Dates: start: 20080610, end: 20080617
  11. POTASSIUM CHLORIDE [Concomitant]
     Dosage: 20MEQ THREE TIMES PER DAY
     Dates: start: 20080611
  12. VANCOMYCIN [Concomitant]
     Indication: PNEUMONIA
     Dosage: 750MG TWICE PER DAY
     Route: 042
     Dates: start: 20080610, end: 20080618
  13. KEPPRA [Concomitant]
     Dosage: 500MG TWICE PER DAY
     Route: 048
     Dates: start: 20080605

REACTIONS (1)
  - HEPATIC ENZYME INCREASED [None]
